FAERS Safety Report 15004102 (Version 1)
Quarter: 2018Q2

REPORT INFORMATION
  Report Type: Other
  Country: IT (occurrence: IT)
  Receive Date: 20180613
  Receipt Date: 20180613
  Transmission Date: 20180711
  Serious: Yes (Other)
  Sender: FDA-Public Use
  Company Number: IT-BRISTOL-MYERS SQUIBB COMPANY-BMS-2018-051130

PATIENT
  Age: 92 Year
  Sex: Female

DRUGS (1)
  1. COUMADINE [Suspect]
     Active Substance: WARFARIN SODIUM
     Indication: ATRIAL FIBRILLATION
     Dosage: 1 DF=1T, UNK
     Route: 048
     Dates: start: 20180101, end: 20180331

REACTIONS (3)
  - Abdominal pain [Recovering/Resolving]
  - Overdose [Recovering/Resolving]
  - Faecaloma [Recovering/Resolving]

NARRATIVE: CASE EVENT DATE: 20180331
